FAERS Safety Report 5186293-4 (Version None)
Quarter: 2006Q4

REPORT INFORMATION
  Report Type: 
  Country: None (occurrence: None)
  Receive Date: 20061220
  Receipt Date: 20061211
  Transmission Date: 20070319
  Serious: Yes (Hospitalization)
  Sender: FDA-Public Use
  Company Number: JP-JNJFOC-20061203695

PATIENT
  Age: 12 Year
  Sex: Male

DRUGS (5)
  1. LEVOFLOXACIN [Suspect]
     Indication: GASTROENTERITIS
     Route: 048
     Dates: start: 20061207, end: 20061208
  2. LAC B [Concomitant]
     Route: 065
  3. NAUZELIN [Concomitant]
     Route: 065
  4. BIOFERMIN [Concomitant]
     Route: 065
  5. BUSCOPAN [Concomitant]
     Route: 065

REACTIONS (2)
  - ABNORMAL BEHAVIOUR [None]
  - DEPRESSED LEVEL OF CONSCIOUSNESS [None]
